FAERS Safety Report 6706171-6 (Version None)
Quarter: 2010Q2

REPORT INFORMATION
  Report Type: 
  Country: None (occurrence: None)
  Receive Date: 20100503
  Receipt Date: 20100421
  Transmission Date: 20101027
  Serious: Yes (Other)
  Sender: FDA-Public Use
  Company Number: DE-PFIZER INC-2010050148

PATIENT
  Age: 65 Year
  Sex: Female
  Weight: 61 kg

DRUGS (9)
  1. AMPICILLIN AND SULBACTAM [Suspect]
     Dosage: 1 DF, 2X/DAY
     Route: 042
     Dates: start: 20070903, end: 20070903
  2. THEOPHYLLIN - SLOW RELEASE ^HEUMANN^ [Concomitant]
     Dosage: 2 DF, 2X/DAY
     Route: 048
  3. TAVANIC [Concomitant]
     Dosage: 500 MG, 1X/DAY
     Route: 048
     Dates: start: 20070903
  4. ACC LONG [Concomitant]
     Dosage: 1 DF, 1X/DAY
     Dates: start: 20070903, end: 20070912
  5. VIANI [Concomitant]
     Dosage: 25UG/250UG 2X/DAY
     Route: 048
  6. SPIRIVA [Concomitant]
     Dosage: 18 UG, 1X/DAY
     Route: 048
  7. DIPYRONE TAB [Concomitant]
     Dosage: 1 DF, 3X/DAY
     Route: 048
     Dates: start: 20070907
  8. FORTECORTIN [Concomitant]
     Dosage: 1 DF, 2X/DAY
     Route: 048
     Dates: start: 20070914, end: 20070916
  9. DIPYRONE TAB [Concomitant]
     Dosage: 30 GTT, 3X/DAY
     Dates: start: 20070903, end: 20070906

REACTIONS (3)
  - DYSPNOEA [None]
  - FEELING HOT [None]
  - NAUSEA [None]
